FAERS Safety Report 16994439 (Version 1)
Quarter: 2019Q4

REPORT INFORMATION
  Report Type: Other
  Country: IT (occurrence: IT)
  Receive Date: 20191105
  Receipt Date: 20191105
  Transmission Date: 20200122
  Serious: Yes (Hospitalization)
  Sender: FDA-Public Use
  Company Number: IT-VALIDUS PHARMACEUTICALS LLC-IT-2019VAL000657

PATIENT

DRUGS (4)
  1. TELMISARTAN. [Suspect]
     Active Substance: TELMISARTAN
     Indication: HYPERTENSION
     Dosage: 40 MG, QD
     Route: 048
  2. FUROSEMIDE. [Suspect]
     Active Substance: FUROSEMIDE
     Indication: OEDEMA
     Dosage: 100 MG, QD
     Route: 048
  3. RIFADINE                           /00146901/ [Concomitant]
     Active Substance: RIFAMPIN
     Indication: PRODUCT USED FOR UNKNOWN INDICATION
     Dosage: UNK
     Dates: start: 20190919, end: 20191015
  4. VANCOMYCIN [Suspect]
     Active Substance: VANCOMYCIN
     Indication: IMPLANT SITE ABSCESS
     Dosage: 2 G, QD
     Route: 042
     Dates: start: 20190919, end: 20190924

REACTIONS (4)
  - Drug level increased [Recovering/Resolving]
  - Blood urea increased [Recovering/Resolving]
  - Confusional state [Recovering/Resolving]
  - Blood creatine phosphokinase increased [Recovering/Resolving]
